FAERS Safety Report 8035517-4 (Version None)
Quarter: 2012Q1

REPORT INFORMATION
  Report Type: 
  Country: None (occurrence: None)
  Receive Date: 20120110
  Receipt Date: 20120110
  Transmission Date: 20120608
  Serious: Yes (Other)
  Sender: FDA-Public Use
  Company Number: None

PATIENT
  Age: 71 Year
  Sex: Female
  Weight: 86.1834 kg

DRUGS (1)
  1. RECLAST [Suspect]
     Indication: OSTEOPOROSIS
     Dates: start: 20101216

REACTIONS (5)
  - DYSSTASIA [None]
  - FEELING HOT [None]
  - PAIN IN EXTREMITY [None]
  - ACTIVITIES OF DAILY LIVING IMPAIRED [None]
  - BLOOD PRESSURE INADEQUATELY CONTROLLED [None]
